FAERS Safety Report 13322111 (Version 1)
Quarter: 2017Q1

REPORT INFORMATION
  Report Type: Spontaneous
  Country: US (occurrence: US)
  Receive Date: 20170309
  Receipt Date: 20170309
  Transmission Date: 20170428
  Serious: No
  Sender: FDA-Public Use
  Company Number: US-PFIZER INC-2016049698

PATIENT
  Age: 85 Year
  Sex: Female
  Weight: 50.79 kg

DRUGS (19)
  1. ALDACTONE [Concomitant]
     Active Substance: SPIRONOLACTONE
     Dosage: UNK
  2. REVATIO [Suspect]
     Active Substance: SILDENAFIL CITRATE
     Indication: COR PULMONALE
     Dosage: 20 MG, 2X/DAY
     Route: 048
     Dates: start: 201702, end: 20170228
  3. FERROUS SULFATE. [Concomitant]
     Active Substance: FERROUS SULFATE
     Indication: IRON DEFICIENCY
     Dosage: 325 MG, 3X/DAY
     Route: 048
  4. IRON [Concomitant]
     Active Substance: IRON
     Dosage: UNK UNK, 3X/DAY
     Route: 048
  5. COREG [Concomitant]
     Active Substance: CARVEDILOL
     Dosage: UNK
  6. NORCO [Concomitant]
     Active Substance: ACETAMINOPHEN\HYDROCODONE BITARTRATE
     Dosage: UNK
  7. POTCHLOR [Concomitant]
     Indication: BLOOD POTASSIUM ABNORMAL
     Dosage: 16 MEQ, 2X/DAY [2 TABLETS]
     Route: 048
  8. ASPIRIN. [Concomitant]
     Active Substance: ASPIRIN
     Dosage: 81 MG, DAILY
     Route: 048
     Dates: start: 2016
  9. LASIX [Concomitant]
     Active Substance: FUROSEMIDE
     Dosage: UNK
  10. COUMADIN [Concomitant]
     Active Substance: WARFARIN SODIUM
     Dosage: UNK
  11. TORSEMIDE. [Concomitant]
     Active Substance: TORSEMIDE
     Indication: FLUID RETENTION
     Dosage: 60 MG, 2X/DAY [3 TABLETS BY MOUTH TWICE A DAY]
     Route: 048
  12. CARVEDILOL. [Concomitant]
     Active Substance: CARVEDILOL
     Indication: BLOOD PRESSURE ABNORMAL
  13. BABY ASPIRIN [Concomitant]
     Active Substance: ASPIRIN
     Dosage: UNK
  14. REVATIO [Suspect]
     Active Substance: SILDENAFIL CITRATE
     Indication: PULMONARY HYPERTENSION
     Dosage: 20 MG, 3X/DAY
     Route: 048
     Dates: start: 201602, end: 201612
  15. CALCIUM [Concomitant]
     Active Substance: CALCIUM
     Indication: RENAL DISORDER
     Dosage: 4 DF, DAILY [4 A DAY]
     Route: 048
  16. CARVEDILOL. [Concomitant]
     Active Substance: CARVEDILOL
     Indication: CARDIAC DISORDER
     Dosage: 6.25 MG, 2X/DAY (ONE HALF OF A TABLET)
     Route: 048
  17. ARANESP [Concomitant]
     Active Substance: DARBEPOETIN ALFA
     Dosage: UNK
  18. SPIRONOLACTONE. [Concomitant]
     Active Substance: SPIRONOLACTONE
     Indication: FLUID RETENTION
     Dosage: 25 MG, 1X/DAY
     Route: 048
  19. METOLAZONE. [Concomitant]
     Active Substance: METOLAZONE
     Indication: FLUID RETENTION
     Dosage: 2.5 MG, AS NEEDED [ONCE A WEEK]
     Route: 048

REACTIONS (7)
  - Influenza [Recovered/Resolved]
  - Fall [Unknown]
  - Contusion [Unknown]
  - Intentional product misuse [Unknown]
  - Nasopharyngitis [Unknown]
  - Malaise [Unknown]
  - Head injury [Unknown]

NARRATIVE: CASE EVENT DATE: 2016
